FAERS Safety Report 8532504-4 (Version None)
Quarter: 2012Q3

REPORT INFORMATION
  Report Type: 
  Country: None (occurrence: None)
  Receive Date: 20120717
  Receipt Date: 20120717
  Transmission Date: 20120928
  Serious: Yes (Life-Threatening, Hospitalization)
  Sender: FDA-Public Use
  Company Number: None

PATIENT
  Age: 82 Year
  Sex: Male
  Weight: 100 kg

DRUGS (1)
  1. XARELTO [Suspect]
     Indication: ATRIAL FIBRILLATION
     Dosage: 20 MG EVERY NIGHT PO
     Route: 048
     Dates: start: 20120201, end: 20120712

REACTIONS (8)
  - SHOCK HAEMORRHAGIC [None]
  - ACUTE RESPIRATORY FAILURE [None]
  - DIZZINESS [None]
  - ANAEMIA [None]
  - HYPOVOLAEMIA [None]
  - ABDOMINAL PAIN [None]
  - RENAL FAILURE ACUTE [None]
  - HAEMODYNAMIC INSTABILITY [None]
